FAERS Safety Report 6417875-7 (Version None)
Quarter: 2009Q4

REPORT INFORMATION
  Report Type: 
  Country: None (occurrence: None)
  Receive Date: 20091028
  Receipt Date: 20091023
  Transmission Date: 20100525
  Serious: Yes (Hospitalization)
  Sender: FDA-Public Use
  Company Number: A0813173A

PATIENT
  Age: 60 Year
  Sex: Female

DRUGS (22)
  1. VENTOLIN [Suspect]
     Dosage: 4SPR UNKNOWN
     Route: 055
  2. COREG [Concomitant]
  3. AVANDAMET [Concomitant]
  4. NITROGLYCERIN [Concomitant]
  5. TRILEPTAL [Concomitant]
  6. K-DUR [Concomitant]
  7. LANTUS [Concomitant]
  8. LASIX [Concomitant]
  9. LOPID [Concomitant]
  10. PROZAC [Concomitant]
  11. NEURONTIN [Concomitant]
  12. PRILOSEC [Concomitant]
  13. ALLEGRA [Concomitant]
  14. FLURAZEPAM [Concomitant]
  15. UNKNOWN MEDICATION [Concomitant]
  16. PLAVIX [Concomitant]
  17. ZOCOR [Concomitant]
  18. ZOLOFT [Concomitant]
  19. VITAMIN B-12 [Concomitant]
  20. MAG-OX [Concomitant]
  21. VITAMIN D [Concomitant]
  22. VENTOLIN [Concomitant]

REACTIONS (3)
  - BRONCHITIS [None]
  - CARDIAC FAILURE [None]
  - COUGH [None]
